FAERS Safety Report 12648151 (Version 2)
Quarter: 2016Q4

REPORT INFORMATION
  Report Type: Report from Study
  Country: US (occurrence: US)
  Receive Date: 20160812
  Receipt Date: 20161004
  Transmission Date: 20170207
  Serious: Yes (Other)
  Sender: FDA-Public Use
  Company Number: US-GILEAD-2016-0203487

PATIENT
  Age: 64 Year
  Sex: Female

DRUGS (4)
  1. AMBRISENTAN [Suspect]
     Active Substance: AMBRISENTAN
     Indication: PRODUCT USED FOR UNKNOWN INDICATION
     Dosage: 10 MG, QD
     Route: 065
     Dates: start: 20160215
  2. ADCIRCA [Concomitant]
     Active Substance: TADALAFIL
  3. UPTRAVI [Suspect]
     Active Substance: SELEXIPAG
     Indication: PRODUCT USED FOR UNKNOWN INDICATION
     Route: 065
  4. VERAPAMIL [Concomitant]
     Active Substance: VERAPAMIL HYDROCHLORIDE

REACTIONS (11)
  - Hypersensitivity [Unknown]
  - Cardiovascular disorder [Unknown]
  - Abdominal pain upper [Unknown]
  - Unevaluable event [Unknown]
  - Nasal congestion [Unknown]
  - Diarrhoea [Recovered/Resolved]
  - Headache [Unknown]
  - Gout [Unknown]
  - Fungal infection [Not Recovered/Not Resolved]
  - Liver disorder [Unknown]
  - Infectious colitis [Unknown]
